FAERS Safety Report 18942448 (Version 1)
Quarter: 2021Q1

REPORT INFORMATION
  Report Type: Spontaneous
  Country: US (occurrence: US)
  Receive Date: 20210225
  Receipt Date: 20210225
  Transmission Date: 20210420
  Serious: Yes (Other)
  Sender: FDA-Public Use
  Company Number: US-PFIZER INC-2021201632

PATIENT
  Age: 57 Year
  Sex: Male

DRUGS (1)
  1. DILANTIN [Suspect]
     Active Substance: PHENYTOIN
     Indication: SEIZURE
     Dosage: 300 MG, DAILY (AT BEDTIME)

REACTIONS (2)
  - Leukopenia [Unknown]
  - Cerebellar atrophy [Unknown]

NARRATIVE: CASE EVENT DATE: 20050919
